FAERS Safety Report 17621226 (Version 1)
Quarter: 2020Q2

REPORT INFORMATION
  Report Type: Spontaneous
  Country: IT (occurrence: IT)
  Receive Date: 20200403
  Receipt Date: 20200403
  Transmission Date: 20200713
  Serious: Yes (Hospitalization)
  Sender: FDA-Public Use
  Company Number: IT-BRISTOL-MYERS SQUIBB COMPANY-BMS-2020-024959

PATIENT
  Age: 22 Year
  Sex: Male
  Weight: 72 kg

DRUGS (2)
  1. AIRCORT [BUDESONIDE] [Concomitant]
     Indication: NASAL OEDEMA
     Dosage: 100 MILLIGRAM PER DAY
     Route: 055
     Dates: start: 20200108
  2. KENACORT [Suspect]
     Active Substance: TRIAMCINOLONE
     Indication: NASAL OEDEMA
     Dosage: 40 MILLIGRAM
     Route: 030
     Dates: start: 20200108

REACTIONS (6)
  - Hot flush [Not Recovered/Not Resolved]
  - Tremor [Not Recovered/Not Resolved]
  - Anxiety [Not Recovered/Not Resolved]
  - Tachycardia [Not Recovered/Not Resolved]
  - Headache [Not Recovered/Not Resolved]
  - Hypertension [Not Recovered/Not Resolved]

NARRATIVE: CASE EVENT DATE: 20200221
